FAERS Safety Report 14795465 (Version 2)
Quarter: 2018Q2

REPORT INFORMATION
  Report Type: Spontaneous
  Country: US (occurrence: US)
  Receive Date: 20180423
  Receipt Date: 20180514
  Transmission Date: 20180711
  Serious: No
  Sender: FDA-Public Use
  Company Number: US-009507513-1804USA008866

PATIENT
  Age: 15 Year
  Sex: Female
  Weight: 37.87 kg

DRUGS (1)
  1. NEXPLANON [Suspect]
     Active Substance: ETONOGESTREL
     Dosage: 1 DF, UNK
     Route: 058
     Dates: start: 20170428, end: 20180419

REACTIONS (6)
  - Drug level increased [Recovered/Resolved]
  - Device deployment issue [Recovered/Resolved]
  - Device breakage [Recovered/Resolved]
  - Urticaria [Recovered/Resolved]
  - Implant site pruritus [Recovered/Resolved]
  - Incorrect dose administered by device [Unknown]

NARRATIVE: CASE EVENT DATE: 20170428
